FAERS Safety Report 7394066-7 (Version None)
Quarter: 2011Q2

REPORT INFORMATION
  Report Type: 
  Country: None (occurrence: None)
  Receive Date: 20110405
  Receipt Date: 20101124
  Transmission Date: 20111010
  Serious: No
  Sender: FDA-Public Use
  Company Number: US-AMGEN-USASP2010006365

PATIENT
  Sex: Female

DRUGS (4)
  1. PROTONIX [Concomitant]
  2. NEULASTA [Suspect]
     Indication: CHEMOTHERAPY
     Dates: start: 20091201, end: 20101101
  3. HYDROCHLOROTHIAZIDE/METOPROLOL [Concomitant]
  4. PACLITAXEL [Concomitant]
     Dosage: 80 MG/M2, UNK

REACTIONS (4)
  - WHITE BLOOD CELL COUNT INCREASED [None]
  - MUSCULOSKELETAL DISCOMFORT [None]
  - CHEST PAIN [None]
  - PALPITATIONS [None]
